FAERS Safety Report 24710049 (Version 1)
Quarter: 2024Q4

REPORT INFORMATION
  Report Type: Spontaneous
  Country: BE (occurrence: BE)
  Receive Date: 20241209
  Receipt Date: 20241209
  Transmission Date: 20250114
  Serious: Yes (Hospitalization, Disabling)
  Sender: SUNOVION
  Company Number: None

PATIENT

DRUGS (4)
  1. RELUGOLIX [Suspect]
     Active Substance: RELUGOLIX
     Indication: Prostate cancer metastatic
     Dosage: STRENGTH: 120 MG
     Route: 065
     Dates: start: 20240813, end: 20241015
  2. ATORVASTATIN CALCIUM\EZETIMIBE [Suspect]
     Active Substance: ATORVASTATIN CALCIUM\EZETIMIBE
     Indication: Product used for unknown indication
     Dosage: STRENGTH: 10 MG/40 MG, EVENING
     Route: 065
  3. ASPIRIN [Concomitant]
     Active Substance: ASPIRIN
     Dosage: STRENGTH: 80 MG
     Route: 065
  4. LEVOTHYROXINE [Concomitant]
     Active Substance: LEVOTHYROXINE
     Dosage: 137.5 ?G, QD
     Route: 065

REACTIONS (7)
  - Pyrexia [Recovering/Resolving]
  - Inflammation [Recovering/Resolving]
  - Myositis [Recovering/Resolving]
  - Polyarthritis [Recovering/Resolving]
  - Drug interaction [Recovering/Resolving]
  - Myalgia [Recovering/Resolving]
  - Arthralgia [Recovering/Resolving]

NARRATIVE: CASE EVENT DATE: 20240916
